FAERS Safety Report 5427045-7 (Version None)
Quarter: 2007Q3

REPORT INFORMATION
  Report Type: 
  Country: None (occurrence: None)
  Receive Date: 20070824
  Receipt Date: 20070824
  Transmission Date: 20080115
  Serious: Yes (Hospitalization)
  Sender: FDA-Public Use
  Company Number: None

PATIENT
  Sex: Female
  Weight: 75 kg

DRUGS (8)
  1. LINEZOLID [Suspect]
     Indication: WOUND INFECTION STAPHYLOCOCCAL
     Dosage: 600MG IV Q 12 HRS
     Route: 042
     Dates: start: 20070418, end: 20070419
  2. LANSOPRAZOLE [Concomitant]
  3. DIPHENHYDRAMINE HCL [Concomitant]
  4. PROMETHAZINE [Concomitant]
  5. ONDANSETRON [Concomitant]
  6. MONTELUKAST SODIUM [Concomitant]
  7. ACETAMINOPHEN W/ CODEINE [Concomitant]
  8. METRONIDAZOLE [Concomitant]

REACTIONS (2)
  - PYREXIA [None]
  - RASH [None]
